FAERS Safety Report 25632007 (Version 2)
Quarter: 2025Q3

REPORT INFORMATION
  Report Type: Spontaneous
  Country: TW (occurrence: TW)
  Receive Date: 20250801
  Receipt Date: 20250812
  Transmission Date: 20251020
  Serious: Yes (Death, Other)
  Sender: MERCK SHARP & DOHME LLC
  Company Number: TW-009507513-2312962

PATIENT
  Age: 64 Year
  Sex: Female

DRUGS (3)
  1. POSACONAZOLE [Suspect]
     Active Substance: POSACONAZOLE
     Indication: Fusarium infection
     Route: 048
     Dates: start: 20240610, end: 20240708
  2. VORICONAZOLE [Suspect]
     Active Substance: VORICONAZOLE
     Indication: Fusarium infection
     Route: 065
     Dates: start: 2024, end: 2024
  3. AMPHOTERICIN B [Suspect]
     Active Substance: AMPHOTERICIN B
     Indication: Fusarium infection
     Route: 065
     Dates: start: 2024, end: 2024

REACTIONS (2)
  - Death [Fatal]
  - Mucormycosis [Unknown]

NARRATIVE: CASE EVENT DATE: 20240815
